FAERS Safety Report 7315922-1 (Version None)
Quarter: 2011Q1

REPORT INFORMATION
  Report Type: 
  Country: None (occurrence: None)
  Receive Date: 20110225
  Receipt Date: 20100804
  Transmission Date: 20110831
  Serious: Yes (Hospitalization, Other)
  Sender: FDA-Public Use
  Company Number: US-BAYER-200943523NA

PATIENT
  Sex: Female
  Weight: 77.098 kg

DRUGS (8)
  1. ERY-TAB [Concomitant]
     Dosage: UNK
     Dates: start: 20020101
  2. PROVENTIL [Concomitant]
  3. MARIJUANA [Concomitant]
     Dosage: UNK
     Dates: start: 20040401
  4. YASMIN [Suspect]
     Indication: PRODUCT USED FOR UNKNOWN INDICATION
     Dosage: UNK
     Route: 048
     Dates: start: 20040101, end: 20040701
  5. ALBUTEROL [Concomitant]
     Dosage: UNK
     Dates: start: 20020101
  6. COCAINE [Concomitant]
  7. PROPOXYPHENE NAPSYLATE W/ ACETAMINOPHEN [Concomitant]
     Dosage: UNK
     Dates: start: 20020101
  8. FLAGYL [Concomitant]
     Dosage: UNK
     Dates: start: 20010101

REACTIONS (10)
  - DEPRESSION [None]
  - NAUSEA [None]
  - CHEST DISCOMFORT [None]
  - HYPERHIDROSIS [None]
  - CHEST PAIN [None]
  - VOMITING [None]
  - PULMONARY EMBOLISM [None]
  - ACUTE MYOCARDIAL INFARCTION [None]
  - CEREBROVASCULAR ACCIDENT [None]
  - DEEP VEIN THROMBOSIS [None]
